FAERS Safety Report 23938629 (Version 1)
Quarter: 2024Q2

REPORT INFORMATION
  Report Type: Spontaneous
  Country: FR (occurrence: FR)
  Receive Date: 20240604
  Receipt Date: 20240604
  Transmission Date: 20240716
  Serious: Yes (Death)
  Sender: FDA-Public Use
  Company Number: FR-AMERICAN REGENT INC-2024002110

PATIENT
  Age: 92 Year
  Sex: Male

DRUGS (1)
  1. VENOFER [Suspect]
     Active Substance: IRON SUCROSE
     Indication: Iron deficiency anaemia
     Dosage: 20 MILLIGRAM
     Route: 042
     Dates: start: 20240328, end: 20240330

REACTIONS (1)
  - Skin necrosis [Fatal]

NARRATIVE: CASE EVENT DATE: 20240402
